FAERS Safety Report 11344281 (Version 2)
Quarter: 2015Q3

REPORT INFORMATION
  Report Type: Spontaneous
  Country: US (occurrence: US)
  Receive Date: 20150806
  Receipt Date: 20150901
  Transmission Date: 20151125
  Serious: Yes (Other)
  Sender: FDA-Public Use
  Company Number: US-TEVA-583198USA

PATIENT
  Sex: Female

DRUGS (1)
  1. COPAXONE [Suspect]
     Active Substance: GLATIRAMER ACETATE
     Indication: MULTIPLE SCLEROSIS
     Dates: start: 20140829

REACTIONS (3)
  - Visual acuity reduced [Unknown]
  - Multiple sclerosis [Unknown]
  - Primary progressive multiple sclerosis [Unknown]

NARRATIVE: CASE EVENT DATE: 2014
